FAERS Safety Report 5557970-8 (Version None)
Quarter: 2007Q4

REPORT INFORMATION
  Report Type: 
  Country: None (occurrence: None)
  Receive Date: 20071214
  Receipt Date: 20071205
  Transmission Date: 20080405
  Serious: Yes (Other)
  Sender: FDA-Public Use
  Company Number: PHHY2007JP00785

PATIENT
  Age: 57 Year
  Sex: Female
  Weight: 50.7 kg

DRUGS (3)
  1. DIOVAN [Suspect]
     Indication: HYPERTENSION
     Dosage: 160 MG, QD
     Route: 048
     Dates: start: 20070831, end: 20070905
  2. CALBLOCK [Concomitant]
     Dosage: 16 MG, UNK
     Route: 065
     Dates: start: 20040723, end: 20070830
  3. LIVALO [Concomitant]
     Dosage: 2 MG, UNK
     Route: 048
     Dates: start: 20050415

REACTIONS (5)
  - ANAPHYLACTIC SHOCK [None]
  - CONVULSION [None]
  - MYALGIA [None]
  - TREMOR [None]
  - VISION BLURRED [None]
